FAERS Safety Report 7554402-5 (Version None)
Quarter: 2011Q2

REPORT INFORMATION
  Report Type: 
  Country: None (occurrence: None)
  Receive Date: 20110617
  Receipt Date: 20110601
  Transmission Date: 20111010
  Serious: Yes (Hospitalization)
  Sender: FDA-Public Use
  Company Number: A0787766A

PATIENT
  Age: 52 Year
  Sex: Male
  Weight: 120.5 kg

DRUGS (5)
  1. METFORMIN HCL [Concomitant]
  2. ALTACE [Concomitant]
  3. GLIMEPIRIDE [Concomitant]
  4. AVANDIA [Suspect]
     Dosage: 4MG THREE TIMES PER DAY
     Route: 048
     Dates: start: 20021101, end: 20060101
  5. FLOMAX [Concomitant]

REACTIONS (2)
  - MYOCARDIAL INFARCTION [None]
  - MYOCARDIAL ISCHAEMIA [None]
